FAERS Safety Report 19310221 (Version 7)
Quarter: 2022Q1

REPORT INFORMATION
  Report Type: Spontaneous
  Country: IN (occurrence: IN)
  Receive Date: 20210526
  Receipt Date: 20220209
  Transmission Date: 20220423
  Serious: Yes (Other)
  Sender: FDA-Public Use
  Company Number: IN-PFIZER INC-2021269979

PATIENT
  Age: 56 Year
  Sex: Female

DRUGS (6)
  1. PALBOCICLIB [Suspect]
     Active Substance: PALBOCICLIB
     Indication: Breast cancer metastatic
     Dosage: 125 MG, ONCE A DAY X 21 DAYS AND 1 WEEK OFF
     Route: 048
     Dates: start: 20200707
  2. LETROZ [Concomitant]
     Indication: Breast cancer metastatic
     Dosage: 2.5 MG, 1X/DAY (28 DAYS)
  3. SHELCAL [CALCIUM CARBONATE;COLECALCIFEROL] [Concomitant]
     Dosage: 500 G, 2X/DAY (28 DAYS)
  4. IVABRAD [Concomitant]
     Dosage: 5 MG, 2X/DAY (28 DAYS)
  5. DOMPERIDONE\PANTOPRAZOLE SODIUM [Concomitant]
     Active Substance: DOMPERIDONE\PANTOPRAZOLE SODIUM
     Dosage: UNK, 2X/DAY (28 DAYS)
  6. IBANDRONATE SODIUM [Concomitant]
     Active Substance: IBANDRONATE SODIUM
     Dosage: 150 MG, MONTHLY
     Route: 048

REACTIONS (3)
  - Pulmonary oedema [Unknown]
  - Knee arthroplasty [Unknown]
  - Oedema peripheral [Unknown]

NARRATIVE: CASE EVENT DATE: 20220101
